FAERS Safety Report 12653157 (Version 3)
Quarter: 2016Q3

REPORT INFORMATION
  Report Type: Report from Study
  Country: NL (occurrence: NL)
  Receive Date: 20160815
  Receipt Date: 20160819
  Transmission Date: 20161109
  Serious: Yes (Hospitalization)
  Sender: FDA-Public Use
  Company Number: NL-ABBVIE-16P-114-1699562-00

PATIENT
  Sex: Male

DRUGS (2)
  1. DUODOPA [Suspect]
     Active Substance: CARBIDOPA\LEVODOPA
     Dosage: MD: 4.0; CD: 5.2; ED: 4.0
     Route: 050
  2. DUODOPA [Suspect]
     Active Substance: CARBIDOPA\LEVODOPA
     Indication: PARKINSON^S DISEASE
     Dosage: MD: 5.0 CD: 4.4, CND: 2.0, ED: 3.0
     Route: 050
     Dates: start: 20160420

REACTIONS (10)
  - Intestinal perforation [Unknown]
  - Abdominal distension [Recovering/Resolving]
  - Parkinsonism [Not Recovered/Not Resolved]
  - Device issue [Unknown]
  - Decreased appetite [Recovering/Resolving]
  - Vomiting [Recovering/Resolving]
  - Impaired gastric emptying [Unknown]
  - Hallucination [Recovering/Resolving]
  - General physical health deterioration [Recovering/Resolving]
  - Abdominal pain upper [Recovering/Resolving]
